FAERS Safety Report 9482749 (Version 4)
Quarter: 2014Q1

REPORT INFORMATION
  Report Type: Spontaneous
  Country: US (occurrence: US)
  Receive Date: 20130828
  Receipt Date: 20140211
  Transmission Date: 20141002
  Serious: Yes (Hospitalization)
  Sender: FDA-Public Use
  Company Number: US-B.I. PHARMACEUTICALS,INC./RIDGEFIELD-2013-BI-25965BP

PATIENT
  Age: 85 Year
  Sex: Female
  Weight: 77 kg

DRUGS (15)
  1. PRADAXA [Suspect]
     Indication: ATRIAL FIBRILLATION
     Dosage: 300 MG
     Route: 048
     Dates: start: 2010
  2. SYNTHROID [Concomitant]
     Indication: HYPOTHYROIDISM
     Route: 048
  3. LASIX [Concomitant]
     Indication: FLUID RETENTION
     Route: 048
  4. LEVOTHYROXINE [Concomitant]
     Indication: HYPOTHYROIDISM
     Dosage: 0.1 MG
     Route: 048
  5. FUROSEMIDE [Concomitant]
     Indication: FLUID RETENTION
     Dosage: 80 MG
     Route: 048
  6. ENABLEX [Concomitant]
     Indication: INCONTINENCE
     Dosage: 15 MG
     Route: 048
  7. METOPROLOL [Concomitant]
     Indication: HYPERTENSION
     Dosage: 50 MG
     Route: 048
  8. POTASSIUM [Concomitant]
     Indication: ELECTROLYTE SUBSTITUTION THERAPY
     Dosage: 20 MEQ
     Route: 048
  9. POTASSIUM [Concomitant]
     Indication: SUPPLEMENTATION THERAPY
  10. NUVOQUININE SULPHATE [Concomitant]
     Indication: PRODUCT USED FOR UNKNOWN INDICATION
     Dosage: 300 MG
     Route: 048
  11. MAGNESIUM [Concomitant]
     Indication: SUPPLEMENTATION THERAPY
     Route: 048
  12. VITAMIN B-12 [Concomitant]
     Indication: SUPPLEMENTATION THERAPY
     Route: 048
  13. CALCIUM [Concomitant]
     Indication: SUPPLEMENTATION THERAPY
     Route: 048
  14. MIRALAX [Concomitant]
     Indication: CONSTIPATION
     Route: 048
  15. FISH OIL [Concomitant]
     Indication: VITAMIN SUPPLEMENTATION
     Route: 048

REACTIONS (12)
  - Limb crushing injury [Recovered/Resolved with Sequelae]
  - Skull fracture [Recovered/Resolved]
  - Facial bones fracture [Recovered/Resolved with Sequelae]
  - Laceration [Recovered/Resolved]
  - Face crushing [Recovered/Resolved]
  - Infection [Recovered/Resolved]
  - Syncope [Unknown]
  - Urinary tract infection [Recovered/Resolved]
  - Fall [Recovered/Resolved]
  - Joint injury [Unknown]
  - Dizziness [Recovered/Resolved]
  - Upper limb fracture [Unknown]
